FAERS Safety Report 20795605 (Version 1)
Quarter: 2022Q2

REPORT INFORMATION
  Report Type: Spontaneous
  Country: US (occurrence: US)
  Receive Date: 20220506
  Receipt Date: 20220506
  Transmission Date: 20220721
  Serious: No
  Sender: FDA-Public Use
  Company Number: US-009507513-2205USA000222

PATIENT
  Sex: Female
  Weight: 102.04 kg

DRUGS (4)
  1. KEYTRUDA [Suspect]
     Active Substance: PEMBROLIZUMAB
     Dosage: UNK
  2. LENVATINIB MESYLATE [Suspect]
     Active Substance: LENVATINIB MESYLATE
     Indication: Endometrial cancer
     Dosage: 14 MG ORAL DAILY
     Route: 048
     Dates: start: 20220411
  3. LENVATINIB MESYLATE [Suspect]
     Active Substance: LENVATINIB MESYLATE
     Indication: Uterine cancer
  4. SYNTHROID [Suspect]
     Active Substance: LEVOTHYROXINE SODIUM
     Dosage: 88 MCG DAILY

REACTIONS (4)
  - Malaise [Unknown]
  - Thyroid disorder [Unknown]
  - Blood pressure increased [Unknown]
  - Oral discomfort [Unknown]

NARRATIVE: CASE EVENT DATE: 20220101
